FAERS Safety Report 7721533-6 (Version None)
Quarter: 2011Q3

REPORT INFORMATION
  Report Type: 
  Country: None (occurrence: None)
  Receive Date: 20110831
  Receipt Date: 20110817
  Transmission Date: 20111222
  Serious: Yes (Other)
  Sender: FDA-Public Use
  Company Number: US-BRACCO-004885

PATIENT
  Sex: Male
  Weight: 82 kg

DRUGS (51)
  1. MAGNEVIST [Suspect]
     Indication: ANGIOPLASTY
     Dates: start: 20050315, end: 20050315
  2. GABAPENTIN [Concomitant]
  3. ASPIRIN [Concomitant]
  4. LASIX [Concomitant]
  5. PREDNISONE [Concomitant]
  6. FLOMAX [Concomitant]
  7. CONTRAST MEDIA [Suspect]
     Indication: RENAL FAILURE CHRONIC
     Dates: start: 20001026
  8. CONTRAST MEDIA [Suspect]
     Indication: NUCLEAR MAGNETIC RESONANCE IMAGING
     Dates: start: 20030402
  9. CONTRAST MEDIA [Suspect]
     Dates: start: 20040504
  10. MAGNEVIST [Suspect]
     Indication: INVESTIGATION
     Dates: start: 20050304, end: 20050304
  11. PLAVIX [Concomitant]
  12. ASPIRIN [Concomitant]
  13. DILTIAZEM [Concomitant]
  14. AMBIEN [Concomitant]
  15. CONTRAST MEDIA [Suspect]
     Indication: ANGIOGRAM
     Dates: start: 20050304, end: 20050304
  16. IMDUR [Concomitant]
  17. CONTRAST MEDIA [Suspect]
     Indication: RENAL ARTERY STENOSIS
     Dates: start: 20010904
  18. PROHANCE [Suspect]
     Indication: ANGIOGRAM
     Dates: start: 20031116, end: 20031116
  19. NOVOLOG [Concomitant]
     Dosage: DOSE: 70/30
  20. PIOGLITAZONE [Concomitant]
  21. DIOVAN [Concomitant]
  22. DEMADEX [Concomitant]
  23. MAGNEVIST [Suspect]
     Indication: NUCLEAR MAGNETIC RESONANCE IMAGING
     Dates: start: 20040504, end: 20040504
  24. ARANESP [Concomitant]
  25. PROGRAF [Concomitant]
  26. NEURONTIN [Concomitant]
  27. FERROUS SULFATE TAB [Concomitant]
  28. LIPITOR [Concomitant]
  29. COZAAR [Concomitant]
  30. METOPROLOL TARTRATE [Concomitant]
  31. AVAPRO [Concomitant]
  32. CONTRAST MEDIA [Suspect]
     Dates: start: 20031116
  33. MAGNEVIST [Suspect]
     Indication: NUCLEAR MAGNETIC RESONANCE IMAGING ABDOMINAL
     Dates: start: 20050304, end: 20050304
  34. RANEXA [Concomitant]
  35. INDERAL [Concomitant]
  36. STARLIX [Concomitant]
  37. CONTRAST MEDIA [Suspect]
     Indication: CARDIAC FAILURE CONGESTIVE
     Dates: start: 19901213
  38. CONTRAST MEDIA [Suspect]
     Dates: start: 20050315
  39. PROHANCE [Suspect]
     Indication: NUCLEAR MAGNETIC RESONANCE IMAGING BRAIN
     Dates: start: 20030508, end: 20030508
  40. CELLCEPT [Concomitant]
  41. OMNISCAN [Suspect]
     Indication: NUCLEAR MAGNETIC RESONANCE IMAGING
     Dates: start: 20030402, end: 20110402
  42. LOPRESSOR [Concomitant]
  43. CONTRAST MEDIA [Suspect]
     Indication: CORONARY ARTERY DISEASE
     Dates: start: 20031010
  44. CONTRAST MEDIA [Suspect]
     Dates: start: 20050304, end: 20050304
  45. RENAGEL [Concomitant]
  46. NEPHROVITE [Concomitant]
  47. COREG [Concomitant]
  48. OMNISCAN [Suspect]
     Indication: ANGIOGRAM
     Dates: start: 20040504, end: 20040504
  49. JANUVIA [Concomitant]
  50. ALLOPURINOL [Concomitant]
  51. VISIPAQUE [Suspect]
     Indication: ANGIOPLASTY
     Dates: start: 20050315

REACTIONS (1)
  - NEPHROGENIC SYSTEMIC FIBROSIS [None]
